FAERS Safety Report 7030797-6 (Version None)
Quarter: 2010Q4

REPORT INFORMATION
  Report Type: 
  Country: None (occurrence: None)
  Receive Date: 20101006
  Receipt Date: 20100928
  Transmission Date: 20110411
  Serious: No
  Sender: FDA-Public Use
  Company Number: US-PFIZER INC-2010123145

PATIENT
  Age: 15 Year
  Sex: Female

DRUGS (1)
  1. ZOLOFT [Suspect]
     Dosage: UNK

REACTIONS (3)
  - DIZZINESS [None]
  - FEELING ABNORMAL [None]
  - VOMITING [None]
